FAERS Safety Report 9517858 (Version 1)
Quarter: 2013Q3

REPORT INFORMATION
  Report Type: Spontaneous
  Country: US (occurrence: None)
  Receive Date: 20130910
  Receipt Date: 20130910
  Transmission Date: 20140515
  Serious: Yes (Other)
  Sender: FDA-Public Use
  Company Number: None

PATIENT
  Age: 54 Year
  Sex: Female

DRUGS (5)
  1. WELLBUTRIN XL [Suspect]
     Indication: ATTENTION DEFICIT/HYPERACTIVITY DISORDER
     Dosage: 30 DAY SUPPLY, 1 IN AM
     Route: 048
     Dates: start: 20130820, end: 20130823
  2. WELLBUTRIN XL [Suspect]
     Indication: DISTURBANCE IN ATTENTION
     Dosage: 30 DAY SUPPLY, 1 IN AM
     Route: 048
     Dates: start: 20130820, end: 20130823
  3. VITAMIN E [Concomitant]
  4. FISH OIL [Concomitant]
  5. BAYER [Concomitant]

REACTIONS (5)
  - Hyperhidrosis [None]
  - Anxiety [None]
  - Mania [None]
  - Oropharyngeal pain [None]
  - Tremor [None]
